FAERS Safety Report 8376565-4 (Version None)
Quarter: 2012Q2

REPORT INFORMATION
  Report Type: 
  Country: None (occurrence: None)
  Receive Date: 20120518
  Receipt Date: 20120508
  Transmission Date: 20120825
  Serious: Yes (Life-Threatening, Hospitalization, Disabling)
  Sender: FDA-Public Use
  Company Number: 2012MA006031

PATIENT
  Age: 31 Year
  Sex: Female
  Weight: 82 kg

DRUGS (5)
  1. PAROXETINE [Suspect]
     Indication: ANXIETY
     Dosage: 30 MG;
     Dates: start: 20040701
  2. AKARIN [Concomitant]
  3. TRAMADOL HYDROCHLORIDE [Suspect]
  4. DICLOFENAC SODIUM [Suspect]
     Indication: BACK PAIN
     Dates: start: 20040429, end: 20040429
  5. DESOGESTREL AND ETHINYL ESTRADIOL [Suspect]
     Indication: CONTRACEPTION
     Dosage: PO
     Route: 048
     Dates: start: 20040425, end: 20040527

REACTIONS (13)
  - CARDIAC ARREST [None]
  - MYOCARDIAL INFARCTION [None]
  - MEMORY IMPAIRMENT [None]
  - RESTLESSNESS [None]
  - WEIGHT INCREASED [None]
  - PARAESTHESIA [None]
  - BACK PAIN [None]
  - INJURY [None]
  - CORONARY ARTERY THROMBOSIS [None]
  - ANXIETY [None]
  - NAUSEA [None]
  - SEROTONIN SYNDROME [None]
  - VOMITING [None]
